FAERS Safety Report 20305408 (Version 1)
Quarter: 2022Q1

REPORT INFORMATION
  Report Type: Spontaneous
  Country: CN (occurrence: CN)
  Receive Date: 20220106
  Receipt Date: 20220106
  Transmission Date: 20220423
  Serious: Yes (Hospitalization)
  Sender: FDA-Public Use
  Company Number: CN-Merck Healthcare KGaA-9289973

PATIENT
  Age: 77 Year
  Sex: Male
  Weight: 55 kg

DRUGS (4)
  1. ERBITUX [Suspect]
     Active Substance: CETUXIMAB
     Indication: Rectal cancer metastatic
     Dosage: 800 MG, UNKNOWN
     Route: 041
     Dates: start: 20211216, end: 20211216
  2. CAPECITABINE [Concomitant]
     Active Substance: CAPECITABINE
     Indication: Rectal cancer metastatic
     Dosage: 1.5 MG, UNK
     Route: 048
     Dates: start: 20211216, end: 20211216
  3. BICALUTAMIDE [Concomitant]
     Active Substance: BICALUTAMIDE
     Indication: Rectal cancer metastatic
     Dosage: 50 MG, DAILY
     Route: 048
     Dates: start: 20211216, end: 20211216
  4. SODIUM CHLORIDE [Concomitant]
     Active Substance: SODIUM CHLORIDE
     Indication: Medication dilution
     Dosage: 250 ML, DAILY
     Route: 041
     Dates: start: 20211216, end: 20211216

REACTIONS (3)
  - Palpitations [Recovering/Resolving]
  - Chills [Recovering/Resolving]
  - Pyrexia [Recovering/Resolving]

NARRATIVE: CASE EVENT DATE: 20211216
